FAERS Safety Report 7335294-6 (Version None)
Quarter: 2011Q1

REPORT INFORMATION
  Report Type: 
  Country: None (occurrence: None)
  Receive Date: 20110307
  Receipt Date: 20110222
  Transmission Date: 20110831
  Serious: Yes (Other)
  Sender: FDA-Public Use
  Company Number: PHHY2011ES05064

PATIENT
  Age: 46 Year
  Sex: Female

DRUGS (1)
  1. TASIGNA [Suspect]
     Dosage: 400 MG, BID
     Route: 048
     Dates: start: 20110117

REACTIONS (7)
  - PRURITUS [None]
  - SYNCOPE [None]
  - HEADACHE [None]
  - DIZZINESS [None]
  - DRY SKIN [None]
  - FALL [None]
  - FOLLICULITIS [None]
